FAERS Safety Report 22005788 (Version 5)
Quarter: 2025Q3

REPORT INFORMATION
  Report Type: Report from Study
  Country: IN (occurrence: IN)
  Receive Date: 20230217
  Receipt Date: 20250916
  Transmission Date: 20251021
  Serious: Yes (Hospitalization)
  Sender: JOHNSON AND JOHNSON
  Company Number: IN-BAYER-2022A127651

PATIENT
  Age: 69 Year
  Sex: Male
  Weight: 59.4 kg

DRUGS (41)
  1. XARELTO [Suspect]
     Active Substance: RIVAROXABAN
     Indication: Atrial fibrillation
     Dosage: 15 MG, QD
     Dates: start: 20220615, end: 20221203
  2. ASPIRIN [Concomitant]
     Active Substance: ASPIRIN
     Indication: Cerebrovascular accident
     Dosage: 75 MG, QD
     Route: 048
     Dates: start: 20220615
  3. ATORVASTATIN [Concomitant]
     Active Substance: ATORVASTATIN
     Indication: Cardiac disorder
     Dosage: 20 MG, QD
     Route: 048
     Dates: start: 20220615
  4. IVABRADINE HYDROCHLORIDE [Concomitant]
     Active Substance: IVABRADINE HYDROCHLORIDE
     Indication: Cardiac disorder
     Dosage: 5 MG, BID
     Route: 048
     Dates: start: 20220615, end: 20220717
  5. INZIT [Concomitant]
     Indication: Hypertension
     Dosage: 4 MG, BID
     Route: 048
     Dates: start: 20220615, end: 20220717
  6. EUREPA MF [Concomitant]
     Indication: Type 2 diabetes mellitus
     Dosage: 502 MG, TID
     Route: 048
     Dates: start: 20220615, end: 20220717
  7. LINAGLIPTIN [Concomitant]
     Active Substance: LINAGLIPTIN
     Indication: Type 2 diabetes mellitus
     Dosage: 5 MG, QD
     Route: 048
     Dates: start: 20220615, end: 20220716
  8. GLUCRETA [Concomitant]
     Indication: Type 2 diabetes mellitus
     Dosage: 10 MG, QD
     Route: 048
     Dates: start: 20220615
  9. LASIX [Concomitant]
     Active Substance: FUROSEMIDE
     Indication: Hypertension
     Dosage: 40 MG, BID
     Route: 048
     Dates: start: 20220615, end: 20220717
  10. LASIX [Concomitant]
     Active Substance: FUROSEMIDE
     Dosage: 40 MG, BID
     Route: 058
     Dates: start: 20220717, end: 20220719
  11. LASIX [Concomitant]
     Active Substance: FUROSEMIDE
     Dosage: 40 MG, BID
     Route: 048
     Dates: start: 20220723
  12. INSULIN HUMAN [Concomitant]
     Active Substance: INSULIN HUMAN
     Indication: Type 2 diabetes mellitus
     Dosage: 16 IU, BID
     Route: 058
     Dates: start: 20220615
  13. CEFOPERAZONE SODIUM\SULBACTAM SODIUM [Concomitant]
     Active Substance: CEFOPERAZONE SODIUM\SULBACTAM SODIUM
     Indication: Bacterial infection
     Dosage: 1500 G, BID
     Dates: start: 20220717, end: 20220719
  14. TAMIFLU [Concomitant]
     Active Substance: OSELTAMIVIR PHOSPHATE
     Indication: Influenza
     Dosage: 75 MG, BID
     Route: 048
     Dates: start: 20220717, end: 20220721
  15. PANTOPRAZOLE SODIUM [Concomitant]
     Active Substance: PANTOPRAZOLE SODIUM
     Indication: Dyspepsia
     Dosage: 40 MG, QD
     Route: 048
     Dates: start: 20220717, end: 20220730
  16. ALDACTONE [Concomitant]
     Active Substance: SPIRONOLACTONE
     Indication: Hypertension
     Dosage: 25 MG, QD
     Route: 048
     Dates: start: 20220717
  17. ACETYLCYSTEINE [Concomitant]
     Active Substance: ACETYLCYSTEINE
     Indication: Respiratory disorder
     Dosage: 600 MG, BID
     Route: 048
     Dates: start: 20220717, end: 20220730
  18. ACTRAPID [Concomitant]
     Active Substance: INSULIN HUMAN
     Indication: Type 2 diabetes mellitus
     Dosage: 6 IU, TID
     Route: 058
     Dates: start: 20220717, end: 20220725
  19. AMBRISENTAN [Concomitant]
     Active Substance: AMBRISENTAN
     Indication: Pulmonary arterial hypertension
     Dosage: 10 MG, QD
     Route: 048
     Dates: start: 20220717
  20. ACETAMINOPHEN [Concomitant]
     Active Substance: ACETAMINOPHEN
     Indication: Pain
     Dosage: 625 MG, QD
     Route: 048
     Dates: start: 20220717, end: 20220725
  21. CEFOPERAZONE\SULBACTAM [Concomitant]
     Active Substance: CEFOPERAZONE\SULBACTAM
     Indication: Bacterial infection
     Dosage: 1.5 G, BID
     Dates: start: 20220720, end: 20220725
  22. FEBUXOSTAT [Concomitant]
     Active Substance: FEBUXOSTAT
     Indication: Gout
     Dosage: 40 MG, BID
     Route: 048
     Dates: start: 20220725
  23. JANUMET [Concomitant]
     Active Substance: METFORMIN HYDROCHLORIDE\SITAGLIPTIN PHOSPHATE
     Indication: Hypertension
     Dosage: 550 MG, BID
     Route: 048
     Dates: start: 20220726, end: 20220815
  24. JANUMET [Concomitant]
     Active Substance: METFORMIN HYDROCHLORIDE\SITAGLIPTIN PHOSPHATE
     Indication: Type 2 diabetes mellitus
  25. AZITHROMYCIN [Concomitant]
     Active Substance: AZITHROMYCIN
     Indication: Bacterial infection
     Dosage: 250 MG, BID
     Route: 048
     Dates: start: 20220726, end: 20220730
  26. DAPAGLIFLOZIN [Concomitant]
     Active Substance: DAPAGLIFLOZIN
     Indication: Type 2 diabetes mellitus
     Dosage: 10 MG, QD
     Route: 048
     Dates: start: 20220726
  27. GLIMY [Concomitant]
     Indication: Type 2 diabetes mellitus
     Dosage: 1 MG, QD
     Route: 048
     Dates: start: 20220726
  28. NOVORAPID [Concomitant]
     Active Substance: INSULIN ASPART
     Indication: Type 2 diabetes mellitus
     Dosage: 8 IU, TID
     Route: 058
     Dates: start: 20220725
  29. CLARITHROMYCIN [Concomitant]
     Active Substance: CLARITHROMYCIN
     Indication: Respiratory tract infection
     Dosage: 750 MG, BID
     Route: 048
     Dates: start: 20220815, end: 20220823
  30. CLARITHROMYCIN [Concomitant]
     Active Substance: CLARITHROMYCIN
     Indication: Pneumonia
  31. PREDNISONE [Concomitant]
     Active Substance: PREDNISONE
     Indication: Inflammation
     Dosage: 30 MG, QD
     Route: 048
     Dates: start: 20220815, end: 20221130
  32. PREDNISONE [Concomitant]
     Active Substance: PREDNISONE
     Indication: Pneumonia
  33. BENIDIPINE [Concomitant]
     Active Substance: BENIDIPINE
     Indication: Hypertension
     Dosage: 4 MG, QD
     Route: 048
     Dates: start: 20220726
  34. VITAMIN B [Concomitant]
     Active Substance: VITAMIN B
     Indication: Nutritional supplementation
     Dosage: 1 DF, QD
     Route: 048
     Dates: start: 20220815
  35. GABAPENTIN [Concomitant]
     Active Substance: GABAPENTIN
     Indication: Neuralgia
     Dosage: 300 MG, QD
     Route: 048
     Dates: start: 20220815, end: 20220929
  36. LANTUS [Concomitant]
     Active Substance: INSULIN GLARGINE
     Indication: Type 2 diabetes mellitus
     Dosage: 15 IU, QD
     Route: 058
     Dates: start: 20220815
  37. CREMAFFIN PLUS [Concomitant]
     Indication: Constipation
     Dosage: 15 ML, QD
     Route: 048
     Dates: start: 20220715, end: 20220825
  38. OLYMPRIX M [Concomitant]
     Indication: Type 2 diabetes mellitus
     Dosage: 525 MG, BID
     Route: 048
     Dates: start: 20220827
  39. OLYMPRIX M [Concomitant]
     Dosage: 520 MG, BID
     Route: 048
     Dates: start: 20220827
  40. FORMIN-PG [Concomitant]
     Indication: Type 2 diabetes mellitus
     Dosage: 516 MG, QD
     Route: 048
     Dates: start: 20220826
  41. VITAMIN B [Concomitant]
     Active Substance: VITAMIN B
     Indication: Vitamin supplementation
     Dosage: UNK UNK, QD
     Route: 048
     Dates: start: 20220815

REACTIONS (7)
  - Interstitial lung disease [Recovered/Resolved]
  - Hypersensitivity pneumonitis [Recovered/Resolved]
  - Influenza [Recovered/Resolved]
  - Pneumonia [Recovered/Resolved]
  - Interstitial lung disease [Recovered/Resolved]
  - Constipation [Recovered/Resolved]
  - Gout [Recovered/Resolved]

NARRATIVE: CASE EVENT DATE: 20220717
